FAERS Safety Report 10740773 (Version 1)
Quarter: 2015Q1

REPORT INFORMATION
  Report Type: Spontaneous
  Country: US (occurrence: None)
  Receive Date: 20150123
  Receipt Date: 20150123
  Transmission Date: 20150721
  Serious: No
  Sender: FDA-Public Use
  Company Number: None

PATIENT
  Age: 55 Year
  Sex: Female
  Weight: 52 kg

DRUGS (1)
  1. SUMATRIPTAN. [Suspect]
     Active Substance: SUMATRIPTAN
     Indication: ELECTROCONVULSIVE THERAPY
     Route: 058
     Dates: start: 20140915

REACTIONS (2)
  - Paraesthesia [None]
  - Throat tightness [None]

NARRATIVE: CASE EVENT DATE: 20140915
